FAERS Safety Report 7814117-2 (Version None)
Quarter: 2011Q4

REPORT INFORMATION
  Report Type: 
  Country: None (occurrence: None)
  Receive Date: 20111014
  Receipt Date: 20111007
  Transmission Date: 20120403
  Serious: Yes (Hospitalization)
  Sender: FDA-Public Use
  Company Number: FR-ASTELLAS-2011EU006989

PATIENT
  Sex: Male

DRUGS (3)
  1. PROGRAF [Suspect]
     Indication: RENAL TRANSPLANT
     Dosage: UNK
     Route: 048
     Dates: start: 20050101
  2. AUGMENTIN '125' [Concomitant]
     Indication: SKIN INFECTION
  3. AUGMENTIN '125' [Concomitant]
     Indication: TOOTH EXTRACTION
     Dosage: UNK
     Route: 065
     Dates: start: 20110701

REACTIONS (2)
  - SKIN INFECTION [None]
  - CORONARY ARTERY DISEASE [None]
